FAERS Safety Report 20099063 (Version 2)
Quarter: 2021Q4

REPORT INFORMATION
  Report Type: Spontaneous
  Country: CN (occurrence: CN)
  Receive Date: 20211122
  Receipt Date: 20211125
  Transmission Date: 20220303
  Serious: Yes (Disabling, Other)
  Sender: FDA-Public Use
  Company Number: CN-SA-SAC20211118001288

PATIENT
  Age: 60 Year
  Sex: Female

DRUGS (2)
  1. LANTUS SOLOSTAR [Suspect]
     Active Substance: INSULIN GLARGINE
     Indication: Diabetes mellitus
     Dosage: 18-20 IU/QD
     Dates: start: 2019
  2. LANTUS SOLOSTAR [Suspect]
     Active Substance: INSULIN GLARGINE
     Dosage: 14-16 IU/QD

REACTIONS (7)
  - Paralysis [Unknown]
  - Cerebral vascular occlusion [Unknown]
  - Movement disorder [Unknown]
  - Blood glucose increased [Unknown]
  - Device issue [Unknown]
  - Blood glucose abnormal [Unknown]
  - Off label use of device [Unknown]
